FAERS Safety Report 9980475 (Version 1)
Quarter: 2014Q1

REPORT INFORMATION
  Report Type: Report from Study
  Country: FR (occurrence: FR)
  Receive Date: 20140307
  Receipt Date: 20140307
  Transmission Date: 20141002
  Serious: Yes (Hospitalization)
  Sender: FDA-Public Use
  Company Number: FR-ROCHE-1358918

PATIENT
  Sex: Female

DRUGS (6)
  1. RITUXIMAB [Suspect]
     Indication: RHEUMATOID ARTHRITIS
     Dosage: INFUSION OF MABTHERA 1G (D15) ON 07-JUL-2009,
     Route: 065
     Dates: start: 20090623
  2. RITUXIMAB [Suspect]
     Dosage: INFUSION OF MABTHERA 1G (D15) ON 03-JUN-2011
     Route: 065
     Dates: start: 20110520
  3. RITUXIMAB [Suspect]
     Dosage: INFUSION OF MABTHERA 1G (D15) ON 05-DEC-2008
     Route: 065
     Dates: start: 20081120
  4. CORTANCYL [Concomitant]
     Route: 065
  5. CORTANCYL [Concomitant]
     Route: 065
  6. SALAZOPYRINE [Concomitant]
     Route: 065

REACTIONS (1)
  - Depression [Not Recovered/Not Resolved]
